FAERS Safety Report 11405532 (Version 3)
Quarter: 2015Q4

REPORT INFORMATION
  Report Type: Report from Study
  Country: US (occurrence: US)
  Receive Date: 20150821
  Receipt Date: 20151222
  Transmission Date: 20160304
  Serious: Yes (Hospitalization)
  Sender: FDA-Public Use
  Company Number: US-VERTEX PHARMACEUTICALS-2015-003046

PATIENT
  Age: 22 Year
  Sex: Female
  Weight: 43 kg

DRUGS (3)
  1. ORKAMBI [Suspect]
     Active Substance: IVACAFTOR\LUMACAFTOR
     Indication: CYSTIC FIBROSIS
     Dosage: REGULAR DOSING
     Route: 048
     Dates: start: 20150728
  2. ORKAMBI [Suspect]
     Active Substance: IVACAFTOR\LUMACAFTOR
     Dosage: REGULAR DOSING
     Route: 048
     Dates: start: 201508, end: 20151117
  3. ORKAMBI [Suspect]
     Active Substance: IVACAFTOR\LUMACAFTOR
     Dosage: 1 DF, QD
     Route: 048
     Dates: start: 201508

REACTIONS (10)
  - Lung disorder [Unknown]
  - Weight decreased [Unknown]
  - Aspergillus infection [Recovering/Resolving]
  - Nephrolithiasis [Unknown]
  - Oxygen saturation decreased [Not Recovered/Not Resolved]
  - Panic attack [Recovering/Resolving]
  - Increased bronchial secretion [Not Recovered/Not Resolved]
  - Feeling abnormal [Recovering/Resolving]
  - Pyrexia [Recovering/Resolving]
  - Respiration abnormal [Not Recovered/Not Resolved]

NARRATIVE: CASE EVENT DATE: 20150728
